FAERS Safety Report 9477091 (Version 1)
Quarter: 2013Q3

REPORT INFORMATION
  Report Type: Spontaneous
  Country: CN (occurrence: CN)
  Receive Date: 20130826
  Receipt Date: 20130826
  Transmission Date: 20140515
  Serious: Yes (Other)
  Sender: FDA-Public Use
  Company Number: CN-BRISTOL-MYERS SQUIBB COMPANY-19199033

PATIENT
  Age: 18 Year
  Sex: Female
  Weight: 48 kg

DRUGS (1)
  1. CEPHRADINE [Suspect]
     Indication: BRONCHITIS
     Route: 042
     Dates: start: 20120110, end: 20120110

REACTIONS (2)
  - Muscle spasms [Recovering/Resolving]
  - Asthenia [Recovering/Resolving]
